FAERS Safety Report 7624546-8 (Version None)
Quarter: 2011Q3

REPORT INFORMATION
  Report Type: 
  Country: None (occurrence: None)
  Receive Date: 20110720
  Receipt Date: 20110713
  Transmission Date: 20111222
  Serious: Yes (Hospitalization, Congenital Anomaly, Other)
  Sender: FDA-Public Use
  Company Number: US-PFIZER INC-2007095343

PATIENT
  Sex: Male
  Weight: 2 kg

DRUGS (6)
  1. ZOLOFT [Suspect]
     Indication: DEPRESSION
     Dosage: 100 MG, 1X/DAY
     Route: 064
     Dates: start: 19980101
  2. PRENATAL VITAMINS [Concomitant]
     Dosage: UNK
     Route: 064
  3. ZANTAC [Concomitant]
     Dosage: UNK
     Route: 064
  4. PROMETHAZINE [Concomitant]
     Dosage: UNK
     Route: 064
  5. NITROUS OXIDE [Concomitant]
     Dosage: UNK
     Route: 064
  6. ZOLOFT [Suspect]
     Indication: OBSESSIVE-COMPULSIVE DISORDER

REACTIONS (15)
  - TALIPES [None]
  - MATERNAL EXPOSURE DURING PREGNANCY [None]
  - RESPIRATORY DISORDER [None]
  - HYPOSPADIAS [None]
  - EAR INFECTION [None]
  - EAR MALFORMATION [None]
  - FOETAL GROWTH RESTRICTION [None]
  - UMBILICAL CORD ABNORMALITY [None]
  - FAILURE TO THRIVE [None]
  - ATRIAL SEPTAL DEFECT [None]
  - HYDRONEPHROSIS [None]
  - DEVELOPMENTAL DELAY [None]
  - VENTRICULAR SEPTAL DEFECT [None]
  - HEAD DEFORMITY [None]
  - WEIGHT GAIN POOR [None]
